FAERS Safety Report 10306021 (Version 2)
Quarter: 2014Q3

REPORT INFORMATION
  Report Type: Spontaneous
  Country: CA (occurrence: None)
  Receive Date: 20140711
  Receipt Date: 20140724
  Transmission Date: 20150326
  Serious: Yes (Other)
  Sender: FDA-Public Use
  Company Number: 2014-002005

PATIENT
  Age: 84 Year
  Sex: Female

DRUGS (8)
  1. ACTONEL [Suspect]
     Active Substance: RISEDRONATE SODIUM
     Route: 048
  2. ALENDRONATE [Suspect]
     Active Substance: ALENDRONATE SODIUM
     Route: 048
  3. DIDROCAL (CALCIUM CARBONATE, ETIDRONATE DISODIUM) [Concomitant]
  4. EVISTA [Concomitant]
     Active Substance: RALOXIFENE HYDROCHLORIDE
  5. MIACALCIN (CALCITONIN, SALMON) [Concomitant]
  6. FORTEO [Concomitant]
     Active Substance: TERIPARATIDE
  7. PROLIA [Suspect]
     Active Substance: DENOSUMAB
     Route: 030
  8. HORMONES [Concomitant]
     Active Substance: UNSPECIFIED INGREDIENT

REACTIONS (3)
  - Osteoporosis [None]
  - Renal failure [None]
  - Wrist fracture [None]
